FAERS Safety Report 5292228-6 (Version None)
Quarter: 2007Q2

REPORT INFORMATION
  Report Type: 
  Country: None (occurrence: None)
  Receive Date: 20070403
  Receipt Date: 20070319
  Transmission Date: 20071010
  Serious: Yes (Hospitalization)
  Sender: FDA-Public Use
  Company Number: 2007AD000028

PATIENT
  Age: 54 Year
  Sex: Female

DRUGS (5)
  1. KEFLEX [Suspect]
     Indication: URINARY TRACT INFECTION
     Dosage: 500 MG; TID;
  2. AZATHIOPRINE [Suspect]
     Indication: PEMPHIGUS
     Dosage: 50 MG; QD
  3. PROCHLORPERAZINE MALEATE [Suspect]
     Indication: NAUSEA
  4. PREDNISOLONE [Concomitant]
  5. METFORMIN HCL [Concomitant]

REACTIONS (15)
  - ACUTE GENERALISED EXANTHEMATOUS PUSTULOSIS [None]
  - ARTHRALGIA [None]
  - DRUG HYPERSENSITIVITY [None]
  - DYSPNOEA [None]
  - DYSURIA [None]
  - HEADACHE [None]
  - HYPOTENSION [None]
  - MALAISE [None]
  - MYALGIA [None]
  - NAUSEA [None]
  - NEUTROPHILIA [None]
  - PYREXIA [None]
  - URINARY TRACT INFECTION [None]
  - VIRAL INFECTION [None]
  - VOMITING [None]
